FAERS Safety Report 6268589-8 (Version None)
Quarter: 2009Q3

REPORT INFORMATION
  Report Type: 
  Country: None (occurrence: None)
  Receive Date: 20090713
  Receipt Date: 20090713
  Transmission Date: 20100115
  Serious: Yes (Life-Threatening)
  Sender: FDA-Public Use
  Company Number: None

PATIENT
  Age: 44 Year
  Sex: Female
  Weight: 47.6277 kg

DRUGS (1)
  1. FERRLECIT [Suspect]
     Indication: IRON DEFICIENCY ANAEMIA
     Dosage: 250 MG 2 HOURS IV DRIP
     Route: 041
     Dates: start: 20090511, end: 20090706

REACTIONS (7)
  - BLOOD PRESSURE DECREASED [None]
  - CONVULSION [None]
  - DIARRHOEA [None]
  - DYSPNOEA [None]
  - HYPOAESTHESIA [None]
  - LOSS OF CONSCIOUSNESS [None]
  - VOMITING [None]
